FAERS Safety Report 24722072 (Version 1)
Quarter: 2024Q4

REPORT INFORMATION
  Report Type: Spontaneous
  Country: DE (occurrence: DE)
  Receive Date: 20241211
  Receipt Date: 20241211
  Transmission Date: 20250115
  Serious: Yes (Hospitalization)
  Sender: SANDOZ
  Company Number: DE-002147023-NVSC2021DE059273

PATIENT
  Sex: Female

DRUGS (7)
  1. ACEMETACIN [Suspect]
     Active Substance: ACEMETACIN
     Indication: Psoriatic arthropathy
     Dosage: 60 MG, UNKNOWN
     Route: 065
     Dates: start: 20170601, end: 20200306
  2. ACEMETACIN [Suspect]
     Active Substance: ACEMETACIN
     Dosage: 90 MG, QW
     Route: 065
     Dates: start: 20200415, end: 20201015
  3. COSENTYX [Suspect]
     Active Substance: SECUKINUMAB
     Indication: Psoriatic arthropathy
     Dosage: 150 MG, QMO
     Route: 042
     Dates: start: 20191209
  4. METHOTREXATE [Suspect]
     Active Substance: METHOTREXATE
     Indication: Psoriatic arthropathy
     Dosage: 10 MG, QW
     Route: 065
     Dates: start: 20130101
  5. Etoriconio [Concomitant]
     Dosage: 240 MG
     Route: 065
     Dates: start: 20200307, end: 20200415
  6. Etoriconio [Concomitant]
     Dosage: 60 MG
     Route: 065
     Dates: start: 20210415
  7. Etoriconio [Concomitant]
     Indication: Product used for unknown indication
     Dosage: 90 MG
     Route: 065
     Dates: start: 20210113

REACTIONS (17)
  - Fibromyalgia [Recovered/Resolved]
  - Pain [Recovered/Resolved]
  - Influenza like illness [Unknown]
  - Rotator cuff syndrome [Unknown]
  - Duodenitis [Unknown]
  - Gastrooesophageal reflux disease [Unknown]
  - Hiatus hernia [Unknown]
  - Eye inflammation [Unknown]
  - Nasopharyngitis [Unknown]
  - Osteoarthritis [Unknown]
  - Hip deformity [Unknown]
  - COVID-19 [Unknown]
  - Road traffic accident [Unknown]
  - COVID-19 [Unknown]
  - Diarrhoea [Unknown]
  - Gastrointestinal infection [Unknown]
  - Cough [Unknown]

NARRATIVE: CASE EVENT DATE: 20200430
